FAERS Safety Report 10732244 (Version 2)
Quarter: 2015Q1

REPORT INFORMATION
  Report Type: Spontaneous
  Country: HU (occurrence: HU)
  Receive Date: 20150123
  Receipt Date: 20150312
  Transmission Date: 20150721
  Serious: Yes (Other)
  Sender: FDA-Public Use
  Company Number: HU-ELI_LILLY_AND_COMPANY-HU201501003963

PATIENT
  Sex: Female

DRUGS (6)
  1. FORSTEO [Suspect]
     Active Substance: TERIPARATIDE
     Indication: OSTEOPOROSIS
     Dosage: UNK, UNKNOWN
     Route: 065
     Dates: start: 20120101, end: 20130701
  2. CITROCALCIO [Concomitant]
     Dosage: 1 DF, BID
  3. BISOBLOCK [Concomitant]
     Active Substance: BISOPROLOL FUMARATE
     Dosage: 1 DF, QD
  4. PIRABENE [Concomitant]
     Dosage: 1 DF, BID
  5. IRBESARTAN. [Concomitant]
     Active Substance: IRBESARTAN
     Dosage: 1 DF, QD
  6. VITAMIN D3 [Concomitant]
     Active Substance: CHOLECALCIFEROL
     Dosage: 1 DF, EACH MORNING

REACTIONS (2)
  - Breast cancer metastatic [Unknown]
  - Metastases to liver [Unknown]

NARRATIVE: CASE EVENT DATE: 201306
